FAERS Safety Report 25749525 (Version 1)
Quarter: 2025Q3

REPORT INFORMATION
  Report Type: Spontaneous
  Country: CN (occurrence: CN)
  Receive Date: 20250902
  Receipt Date: 20250902
  Transmission Date: 20251021
  Serious: Yes (Life-Threatening, Hospitalization, Other)
  Sender: RANBAXY
  Company Number: CN-SUN PHARMACEUTICAL INDUSTRIES LTD-2025R1-524832

PATIENT
  Age: 55 Year
  Sex: Male

DRUGS (1)
  1. CLOZAPINE [Suspect]
     Active Substance: CLOZAPINE
     Indication: Schizophrenia
     Route: 048

REACTIONS (8)
  - Atrioventricular block complete [Recovering/Resolving]
  - Respiratory failure [Recovering/Resolving]
  - Toxicity to various agents [Recovering/Resolving]
  - Rhabdomyolysis [Recovering/Resolving]
  - Drug level above therapeutic [Recovering/Resolving]
  - Altered state of consciousness [Recovering/Resolving]
  - Coma [Recovered/Resolved]
  - Intentional overdose [Recovering/Resolving]
